FAERS Safety Report 7577483-1 (Version None)
Quarter: 2011Q2

REPORT INFORMATION
  Report Type: 
  Country: None (occurrence: None)
  Receive Date: 20110628
  Receipt Date: 20110606
  Transmission Date: 20111010
  Serious: Yes (Hospitalization, Other)
  Sender: FDA-Public Use
  Company Number: US-BAYER-201042073NA

PATIENT
  Age: 16 Year
  Sex: Female
  Weight: 61.678 kg

DRUGS (4)
  1. CONCERTA [Concomitant]
  2. YAZ [Suspect]
     Indication: ACNE
     Route: 048
     Dates: start: 20080127, end: 20090924
  3. AMOXICILLIN [Concomitant]
  4. YAZ [Suspect]
     Indication: CONTRACEPTION

REACTIONS (6)
  - CHOLECYSTECTOMY [None]
  - PAIN [None]
  - CHOLECYSTITIS CHRONIC [None]
  - CHOLELITHIASIS [None]
  - PANCREATITIS [None]
  - CHOLESTEROSIS [None]
